FAERS Safety Report 5357054-8 (Version None)
Quarter: 2007Q2

REPORT INFORMATION
  Report Type: 
  Country: None (occurrence: None)
  Receive Date: 20070614
  Receipt Date: 20070605
  Transmission Date: 20071010
  Serious: Yes (Other)
  Sender: FDA-Public Use
  Company Number: TR-GENENTECH-235608

PATIENT
  Age: 8 Year
  Sex: Male
  Weight: 17 kg

DRUGS (2)
  1. NUTROPIN [Suspect]
     Indication: GROWTH HORMONE DEFICIENCY
     Dosage: 0.33 MG/KG, 1/WEEK
  2. NUTROPIN [Suspect]
     Dosage: 0.2 MG/KG, 1/WEEK

REACTIONS (1)
  - PSORIASIS [None]
